FAERS Safety Report 18970569 (Version 1)
Quarter: 2021Q1

REPORT INFORMATION
  Report Type: Spontaneous
  Country: US (occurrence: US)
  Receive Date: 20210304
  Receipt Date: 20210304
  Transmission Date: 20210420
  Serious: Yes (Other)
  Sender: FDA-Public Use
  Company Number: US-ALLERGAN-2108573US

PATIENT
  Sex: Female

DRUGS (1)
  1. PYLERA [Suspect]
     Active Substance: BISMUTH SUBCITRATE POTASSIUM\METRONIDAZOLE\TETRACYCLINE HYDROCHLORIDE
     Indication: GASTRIC INFECTION
     Dosage: 3 DF
     Route: 048
     Dates: start: 202102

REACTIONS (4)
  - Transient ischaemic attack [Unknown]
  - Hypoaesthesia [Recovered/Resolved]
  - Incorrect dose administered [Unknown]
  - Muscle twitching [Recovered/Resolved]

NARRATIVE: CASE EVENT DATE: 202102
